FAERS Safety Report 8061749-5 (Version None)
Quarter: 2012Q1

REPORT INFORMATION
  Report Type: 
  Country: None (occurrence: None)
  Receive Date: 20120123
  Receipt Date: 20120112
  Transmission Date: 20120608
  Serious: No
  Sender: FDA-Public Use
  Company Number: US-BIOGENIDEC-2011BI048017

PATIENT
  Sex: Female

DRUGS (8)
  1. SOMO350 [Concomitant]
  2. AVONEX [Suspect]
     Route: 030
     Dates: start: 20090521, end: 20110613
  3. PERCOSET (GENERIC BRAND) [Concomitant]
     Indication: MUSCLE SPASMS
  4. PERCOSET (GENERIC BRAND) [Concomitant]
  5. AVONEX [Suspect]
     Indication: MULTIPLE SCLEROSIS
     Route: 030
     Dates: start: 20090501
  6. SOMO350 [Concomitant]
     Indication: MUSCLE SPASMS
  7. BACLOFEN [Concomitant]
     Indication: MUSCLE SPASMS
  8. BACLOFEN [Concomitant]

REACTIONS (1)
  - MOTOR DYSFUNCTION [None]
